FAERS Safety Report 24003643 (Version 6)
Quarter: 2024Q4

REPORT INFORMATION
  Report Type: Report from Study
  Country: US (occurrence: US)
  Receive Date: 20240624
  Receipt Date: 20241125
  Transmission Date: 20250115
  Serious: Yes (Other)
  Sender: ROCHE
  Company Number: US-ROCHE-10000003029

PATIENT
  Age: 35 Year
  Sex: Female

DRUGS (2)
  1. XOLAIR PFS [Suspect]
     Active Substance: OMALIZUMAB
     Indication: Urticaria
     Route: 050
  2. XOLAIR PFS [Suspect]
     Active Substance: OMALIZUMAB

REACTIONS (4)
  - Off label use [Unknown]
  - Anaphylactic shock [Unknown]
  - Urticaria [Unknown]
  - Drug ineffective [Unknown]
